FAERS Safety Report 18444066 (Version 2)
Quarter: 2020Q4

REPORT INFORMATION
  Report Type: Report from Study
  Country: None (occurrence: BG)
  Receive Date: 20201030
  Receipt Date: 20201108
  Transmission Date: 20210114
  Serious: Yes (Hospitalization, Other)
  Sender: FDA-Public Use
  Company Number: BG-ABBVIE-20K-022-3629105-00

PATIENT
  Age: 73 Year
  Sex: Male

DRUGS (1)
  1. HUMIRA [Suspect]
     Active Substance: ADALIMUMAB
     Indication: PSORIASIS
     Route: 058
     Dates: start: 201903

REACTIONS (5)
  - Biliary tract disorder [Unknown]
  - Cholecystectomy [Unknown]
  - Pancreatic carcinoma [Unknown]
  - Fatigue [Unknown]
  - Decreased appetite [Unknown]
